FAERS Safety Report 22118387 (Version 1)
Quarter: 2023Q1

REPORT INFORMATION
  Report Type: Spontaneous
  Country: ZA (occurrence: ZA)
  Receive Date: 20230321
  Receipt Date: 20230321
  Transmission Date: 20230418
  Serious: Yes (Hospitalization, Other)
  Sender: FDA-Public Use
  Company Number: ZA-CIPLA LTD.-2023ZA01640

PATIENT

DRUGS (1)
  1. EFAVIRENZ [Suspect]
     Active Substance: EFAVIRENZ
     Indication: HIV infection
     Dosage: UNK
     Route: 065

REACTIONS (6)
  - Cerebellar atrophy [Unknown]
  - Toxicity to various agents [Unknown]
  - Mobility decreased [Unknown]
  - Wheelchair user [Not Recovered/Not Resolved]
  - Loss of personal independence in daily activities [Unknown]
  - Ataxia [Unknown]
